FAERS Safety Report 9272824 (Version 1)
Quarter: 2013Q2

REPORT INFORMATION
  Report Type: Spontaneous
  Country: US (occurrence: US)
  Receive Date: 20130506
  Receipt Date: 20130506
  Transmission Date: 20140414
  Serious: No
  Sender: FDA-Public Use
  Company Number: US-ASTRAZENECA-2012SE72339

PATIENT
  Sex: Female

DRUGS (3)
  1. PRILOSEC OTC [Suspect]
     Route: 048
     Dates: start: 20120829, end: 20120829
  2. COREG [Concomitant]
     Dosage: UNKNOWN
  3. PROCARDIA [Concomitant]
     Dosage: UNKNOWN

REACTIONS (4)
  - Chest discomfort [Recovered/Resolved]
  - Gastrooesophageal reflux disease [Recovered/Resolved]
  - Eructation [Recovered/Resolved]
  - Nausea [Recovered/Resolved]
